FAERS Safety Report 6936454-6 (Version None)
Quarter: 2010Q3

REPORT INFORMATION
  Report Type: 
  Country: None (occurrence: None)
  Receive Date: 20100823
  Receipt Date: 20100813
  Transmission Date: 20110219
  Serious: Yes (Death, Life-Threatening, Hospitalization, Other)
  Sender: FDA-Public Use
  Company Number: JP-ROCHE-687636

PATIENT
  Sex: Male
  Weight: 48 kg

DRUGS (8)
  1. AVASTIN [Suspect]
     Indication: COLORECTAL CANCER METASTATIC
     Route: 041
     Dates: start: 20090428, end: 20090101
  2. AVASTIN [Suspect]
     Dosage: STOP DATE: 2009
     Route: 041
     Dates: start: 20090708
  3. AVASTIN [Suspect]
     Route: 041
     Dates: start: 20090902, end: 20100120
  4. CAMPTOSAR [Suspect]
     Indication: COLORECTAL CANCER METASTATIC
     Route: 041
     Dates: start: 20090428, end: 20100120
  5. FLUOROURACIL [Suspect]
     Indication: COLORECTAL CANCER METASTATIC
     Route: 040
     Dates: start: 20090428, end: 20090902
  6. FLUOROURACIL [Suspect]
     Dosage: INTRAVENOUS DRIP
     Route: 040
     Dates: start: 20090428, end: 20090901
  7. ISOVORIN [Suspect]
     Indication: COLORECTAL CANCER METASTATIC
     Route: 041
     Dates: start: 20090428, end: 20090902
  8. GASTER [Concomitant]
     Indication: COLORECTAL CANCER METASTATIC
     Route: 065
     Dates: start: 20090428, end: 20100201

REACTIONS (7)
  - ABDOMINAL ABSCESS [None]
  - BILE DUCT STONE [None]
  - CEREBRAL INFARCTION [None]
  - GRANULOCYTE COUNT DECREASED [None]
  - ILEAL PERFORATION [None]
  - MALIGNANT ASCITES [None]
  - STOMATITIS [None]
